FAERS Safety Report 8317684-8 (Version None)
Quarter: 2012Q2

REPORT INFORMATION
  Report Type: 
  Country: None (occurrence: None)
  Receive Date: 20120427
  Receipt Date: 20120426
  Transmission Date: 20120825
  Serious: Yes (Hospitalization)
  Sender: FDA-Public Use
  Company Number: IT-BRISTOL-MYERS SQUIBB COMPANY-16516528

PATIENT
  Age: 49 Year
  Sex: Male

DRUGS (2)
  1. COUMADIN [Suspect]
     Indication: ATRIAL FIBRILLATION
     Route: 048
     Dates: start: 20111001, end: 20120316
  2. ASPIRIN [Suspect]
     Indication: ATRIAL FIBRILLATION
     Dosage: INTERR ON 16MAR2012
     Route: 048
     Dates: start: 20111001

REACTIONS (2)
  - DRUG ADMINISTRATION ERROR [None]
  - GINGIVAL BLEEDING [None]
